FAERS Safety Report 9391205 (Version 3)
Quarter: 2013Q3

REPORT INFORMATION
  Report Type: Report from Study
  Country: US (occurrence: US)
  Receive Date: 20130709
  Receipt Date: 20130822
  Transmission Date: 20140515
  Serious: Yes (Hospitalization)
  Sender: FDA-Public Use
  Company Number: US-ALEXION-A201301533

PATIENT
  Age: 24 Year
  Sex: Female

DRUGS (20)
  1. ECULIZUMAB [Suspect]
     Indication: HAEMOLYTIC URAEMIC SYNDROME
     Dosage: UNK
     Route: 042
  2. AMLODIPINE [Concomitant]
     Dosage: 5 MG, QD
  3. AZATHIOPRINE [Concomitant]
     Dosage: 50 MG, QD
  4. CARVEDILOL [Concomitant]
     Dosage: 25 MG, BID
  5. CINACALCET [Concomitant]
     Dosage: 30 MG, QOD
  6. CITALOPRAM [Concomitant]
     Dosage: 30 MG, QD
  7. CLONIDINE [Concomitant]
     Dosage: 0.3 MG, TID
  8. DICYCLOMINE [Concomitant]
     Dosage: 10 MG
     Route: 048
  9. DILTIAZEM [Concomitant]
     Dosage: 360 MG, QD EXTENDED RELEASE
     Route: 048
  10. ERGOCALCIFEROL [Concomitant]
     Dosage: 50000 UNITS ONCE A WEEK
  11. LORAZEPAM [Concomitant]
     Indication: ANXIETY
     Dosage: 0.5 MG, PRN THREE TIMES DAILY
  12. LOSARTAN [Concomitant]
     Dosage: 50 MG, QD
  13. MINOXIDIL [Concomitant]
     Dosage: 2.5 MG, TID
  14. NEXIUM [Concomitant]
     Dosage: 40 MG, QD
  15. PREDNISONE [Concomitant]
     Dosage: 10 MG, QD
  16. PROMETHAZINE [Concomitant]
     Indication: NAUSEA
     Dosage: 12.5 MG, PRN EVERY SIX HOURS
     Route: 048
  17. REGLAN [Concomitant]
     Indication: NAUSEA
     Dosage: 10 MG, QID WITH MEALS
  18. TACROLIMUS [Concomitant]
     Dosage: 3 MG, BID
  19. VALCYTE [Concomitant]
     Dosage: 450 MG, QD
  20. ZOLPIDEM [Concomitant]
     Dosage: 10 MG, QD AT BEDTIME

REACTIONS (2)
  - Urinary tract infection [Recovered/Resolved]
  - Abdominal pain [Recovered/Resolved]
